FAERS Safety Report 6574914-0 (Version None)
Quarter: 2010Q1

REPORT INFORMATION
  Report Type: 
  Country: None (occurrence: None)
  Receive Date: 20100201
  Receipt Date: 20100121
  Transmission Date: 20100710
  Serious: Yes (Life-Threatening, Hospitalization)
  Sender: FDA-Public Use
  Company Number: DSM-2010-00095

PATIENT
  Age: 61 Year
  Sex: Male
  Weight: 90 kg

DRUGS (11)
  1. OLMESARTAN MEDOXOMIL [Suspect]
     Indication: HYPERTENSION
     Dosage: (2 IN 1 D) , ORAL, 10 MG (10 MG, 1 IN 1 D) ,ORAL, 20-0-10 MG (2 IN 1 D) ,ORAL
     Route: 048
     Dates: end: 20090905
  2. OLMESARTAN MEDOXOMIL [Suspect]
     Indication: HYPERTENSION
     Dosage: (2 IN 1 D) , ORAL, 10 MG (10 MG, 1 IN 1 D) ,ORAL, 20-0-10 MG (2 IN 1 D) ,ORAL
     Route: 048
     Dates: start: 20090910
  3. OLMESARTAN MEDOXOMIL [Suspect]
     Indication: HYPERTENSION
     Dosage: (2 IN 1 D) , ORAL, 10 MG (10 MG, 1 IN 1 D) ,ORAL, 20-0-10 MG (2 IN 1 D) ,ORAL
     Route: 048
     Dates: start: 20091112
  4. FUROSEMIDE [Suspect]
     Indication: HYPERTENSION
     Dosage: 40 MG (40 MG, 1 IN 1 D) ,ORAL, 20 MG (0 MG, 1 IN 1 D) ,ORAL
     Route: 048
     Dates: end: 20090905
  5. FUROSEMIDE [Suspect]
     Indication: HYPERTENSION
     Dosage: 40 MG (40 MG, 1 IN 1 D) ,ORAL, 20 MG (0 MG, 1 IN 1 D) ,ORAL
     Route: 048
     Dates: start: 20090914
  6. ENAHEXAL COMP. (HYDROCHLOROTHIAZIDE, ENALAPRIL MALEATE) (TABLET) (HYDR [Suspect]
     Indication: HYPERTENSION
     Dosage: 5/12.5 MG (1 IN 1 D) ,ORAL, 2.5 MG ENALAPRIL (1 IN 1 D) ,ORAL
     Route: 048
     Dates: end: 20090905
  7. ENAHEXAL COMP. (HYDROCHLOROTHIAZIDE, ENALAPRIL MALEATE) (TABLET) (HYDR [Suspect]
     Indication: HYPERTENSION
     Dosage: 5/12.5 MG (1 IN 1 D) ,ORAL, 2.5 MG ENALAPRIL (1 IN 1 D) ,ORAL
     Route: 048
     Dates: start: 20090909
  8. SPIRONOLACTONE [Suspect]
     Indication: DRUG USE FOR UNKNOWN INDICATION
     Dosage: (1 IN 1 D) ,ORAL
     Route: 048
     Dates: end: 20090905
  9. METFORMIN HYDROCHLORIDE [Suspect]
     Indication: TYPE 2 DIABETES MELLITUS
     Dosage: (3 IN 1 D) ,ORAL
     Route: 048
     Dates: start: 20050101, end: 20090905
  10. HUMALOG MIX 25 (INSULIN LISPRO, INSULIN LISPRO PROTAMINE SUSPENSION) ( [Concomitant]
  11. MOXONIDINE (MOXONIDINE) (0.3 MILLIGRAM, COATED TABLET) (MOXONIDINE) [Concomitant]

REACTIONS (6)
  - ACUTE PRERENAL FAILURE [None]
  - CYANOSIS [None]
  - DIARRHOEA [None]
  - DYSPNOEA [None]
  - HAEMODIALYSIS [None]
  - LACTIC ACIDOSIS [None]
